FAERS Safety Report 6671113-9 (Version None)
Quarter: 2010Q2

REPORT INFORMATION
  Report Type: 
  Country: None (occurrence: None)
  Receive Date: 20100407
  Receipt Date: 20100330
  Transmission Date: 20101027
  Serious: Yes (Hospitalization)
  Sender: FDA-Public Use
  Company Number: PHHY2010US01924

PATIENT
  Sex: Male

DRUGS (7)
  1. EXELON [Suspect]
     Indication: DEMENTIA ALZHEIMER'S TYPE
     Dosage: 9.5 MG, QD
     Route: 062
     Dates: start: 20090501, end: 20100101
  2. NAMENDA [Concomitant]
     Indication: DEMENTIA ALZHEIMER'S TYPE
     Dosage: UNK
     Route: 048
  3. ALTACE [Concomitant]
  4. PLAVIX [Concomitant]
  5. RAMIPRIL [Concomitant]
  6. VYTORIN [Concomitant]
  7. M.V.I. [Concomitant]

REACTIONS (8)
  - ANGER [None]
  - ASTHENIA [None]
  - CONFUSIONAL STATE [None]
  - DECREASED APPETITE [None]
  - DECREASED INTEREST [None]
  - MALAISE [None]
  - NAUSEA [None]
  - WEIGHT DECREASED [None]
